FAERS Safety Report 6948496 (Version 3)
Quarter: 2013Q2

REPORT INFORMATION
  Report Type: Spontaneous
  Country: US (occurrence: None)
  Receive Date: 20090312
  Receipt Date: 20130607
  Transmission Date: 20140414
  Serious: Yes (Hospitalization, Other)
  Sender: FDA-Public Use
  Company Number: CERZ-1000548

PATIENT
  Age: 74 Year
  Sex: Female
  Weight: 83 kg

DRUGS (1)
  1. CEREZYME [Suspect]
     Indication: GAUCHER^S DISEASE
     Dosage: 6400 U, Q2W
     Route: 042

REACTIONS (12)
  - UPPER RESPIRATORY TRACT INFECTION [None]
  - SINUSITIS [None]
  - BRONCHITIS [None]
  - ARTHROPATHY [None]
  - IMPAIRED HEALING [None]
  - TOOTH DISORDER [None]
  - RESPIRATORY DISORDER [None]
  - BONE DENSITY DECREASED [None]
  - EPISTAXIS [None]
  - WEIGHT INCREASED [None]
  - COLON CANCER [None]
  - LYMPHOMA [None]
